FAERS Safety Report 9279093 (Version 2)
Quarter: 2013Q2

REPORT INFORMATION
  Report Type: Spontaneous
  Country: US (occurrence: US)
  Receive Date: 20130508
  Receipt Date: 20130530
  Transmission Date: 20140414
  Serious: No
  Sender: FDA-Public Use
  Company Number: US-ASTRAZENECA-2013SE28515

PATIENT
  Age: 53 Year
  Sex: Male
  Weight: 90.7 kg

DRUGS (4)
  1. NEXIUM [Suspect]
     Indication: GASTROOESOPHAGEAL REFLUX DISEASE
     Route: 048
     Dates: start: 2008
  2. DILTIAZEM [Concomitant]
     Indication: ATRIAL FIBRILLATION
     Dosage: 180 MGS
     Route: 048
  3. PROPAFONE [Concomitant]
     Indication: HEART RATE IRREGULAR
     Dosage: UNKNOWN
     Route: 048
  4. XARALTO [Concomitant]
     Indication: HEART RATE IRREGULAR
     Dosage: UNKNOWN
     Route: 048

REACTIONS (9)
  - Dilatation atrial [Unknown]
  - Atrial fibrillation [Unknown]
  - Cardiac disorder [Unknown]
  - Food poisoning [Unknown]
  - Medication residue present [Unknown]
  - Medication residue present [Unknown]
  - Vomiting [Unknown]
  - Diarrhoea [Unknown]
  - Diarrhoea [Unknown]
